FAERS Safety Report 11595316 (Version 2)
Quarter: 2015Q4

REPORT INFORMATION
  Report Type: Spontaneous
  Country: US (occurrence: US)
  Receive Date: 20151006
  Receipt Date: 20151008
  Transmission Date: 20160304
  Serious: No
  Sender: FDA-Public Use
  Company Number: US-009507513-1509USA013737

PATIENT
  Age: 66 Year
  Sex: Female

DRUGS (1)
  1. BELSOMRA [Suspect]
     Active Substance: SUVOREXANT
     Indication: SOMNAMBULISM
     Dosage: TOOK ONE HALF OF 10MG TABLET
     Route: 048
     Dates: start: 20150923, end: 20150924

REACTIONS (5)
  - Cold sweat [Unknown]
  - Breath odour [Unknown]
  - Wrong technique in product usage process [Unknown]
  - Insomnia [Unknown]
  - Headache [Unknown]

NARRATIVE: CASE EVENT DATE: 20150923
